FAERS Safety Report 14204954 (Version 2)
Quarter: 2018Q1

REPORT INFORMATION
  Report Type: Spontaneous
  Country: RU (occurrence: RU)
  Receive Date: 20171120
  Receipt Date: 20180216
  Transmission Date: 20180508
  Serious: Yes (Death, Hospitalization)
  Sender: FDA-Public Use
  Company Number: RU-JNJFOC-20171119455

PATIENT
  Age: 4 Decade
  Sex: Male

DRUGS (9)
  1. KETOSTERYL [Concomitant]
     Route: 065
     Dates: start: 201706
  2. PREDNISOLONE. [Concomitant]
     Active Substance: PREDNISOLONE
     Route: 065
     Dates: start: 201706
  3. VEROSPIRON [Concomitant]
     Active Substance: SPIRONOLACTONE
     Route: 065
     Dates: start: 201706
  4. SORBIFER [Concomitant]
     Active Substance: FERROUS SULFATE
     Route: 065
     Dates: start: 201706
  5. CALCIUM CARBONATE. [Concomitant]
     Active Substance: CALCIUM CARBONATE
     Route: 065
     Dates: start: 201706
  6. FUROSEMIDE. [Concomitant]
     Active Substance: FUROSEMIDE
     Route: 065
     Dates: start: 201706
  7. TRAMADOL. [Concomitant]
     Active Substance: TRAMADOL
     Route: 065
  8. SIMPONI [Suspect]
     Active Substance: GOLIMUMAB
     Indication: ANKYLOSING SPONDYLITIS
     Route: 058
     Dates: start: 20150126, end: 201709
  9. ENAP [Concomitant]
     Active Substance: ENALAPRIL
     Route: 065
     Dates: start: 201706

REACTIONS (9)
  - Pneumonia [Not Recovered/Not Resolved]
  - Chronic kidney disease [Unknown]
  - Cardiac valve sclerosis [Fatal]
  - Cardiac failure chronic [Fatal]
  - Periodontitis [Unknown]
  - Pulmonary oedema [Fatal]
  - Amyloidosis [Fatal]
  - Neurotoxicity [Unknown]
  - Drug dose omission [Unknown]

NARRATIVE: CASE EVENT DATE: 201701
